FAERS Safety Report 10042708 (Version 1)
Quarter: 2014Q1

REPORT INFORMATION
  Report Type: Spontaneous
  Country: US (occurrence: US)
  Receive Date: 20140327
  Receipt Date: 20140327
  Transmission Date: 20141002
  Serious: Yes (Other)
  Sender: FDA-Public Use
  Company Number: US-PFIZER INC-2014086726

PATIENT
  Age: 52 Year
  Sex: Female
  Weight: 109 kg

DRUGS (3)
  1. NEURONTIN [Suspect]
     Indication: NERVE INJURY
     Dosage: 300 MG, 2X/DAY
     Dates: start: 2006, end: 2006
  2. ALLOPURINOL [Concomitant]
     Indication: GOUT
     Dosage: UNK
  3. THEOPHYLLINE [Concomitant]
     Indication: ASTHMA
     Dosage: UNK

REACTIONS (3)
  - Suicidal ideation [Unknown]
  - Drug hypersensitivity [Unknown]
  - Confusional state [Unknown]
